FAERS Safety Report 7409129-7 (Version None)
Quarter: 2011Q2

REPORT INFORMATION
  Report Type: 
  Country: None (occurrence: None)
  Receive Date: 20110408
  Receipt Date: 20110408
  Transmission Date: 20111010
  Serious: No
  Sender: FDA-Public Use
  Company Number: None

PATIENT
  Age: 63 Year
  Sex: Female

DRUGS (2)
  1. CITALOPRAM (CELEXA) [Suspect]
     Dates: start: 20081101, end: 20081201
  2. ARTHROTEC [Suspect]
     Dates: start: 20081120, end: 20090131

REACTIONS (7)
  - DRUG INEFFECTIVE [None]
  - UNEVALUABLE EVENT [None]
  - SELF-MEDICATION [None]
  - LIVER INJURY [None]
  - HEPATIC NECROSIS [None]
  - UPPER RESPIRATORY TRACT INFECTION [None]
  - AUTOIMMUNE HEPATITIS [None]
